FAERS Safety Report 6078974-5 (Version None)
Quarter: 2009Q1

REPORT INFORMATION
  Report Type: 
  Country: None (occurrence: None)
  Receive Date: 20090216
  Receipt Date: 20090213
  Transmission Date: 20090719
  Serious: Yes (Death)
  Sender: FDA-Public Use
  Company Number: US-ASTRAZENECA-2009UW04201

PATIENT
  Age: 75 Year
  Sex: Female

DRUGS (5)
  1. SEROQUEL [Suspect]
     Route: 048
  2. ATIVAN [Concomitant]
  3. SINEMET [Concomitant]
  4. LITHIUM CARBONATE [Concomitant]
  5. MOBIC [Concomitant]

REACTIONS (1)
  - SUDDEN DEATH [None]
